FAERS Safety Report 8023353-4 (Version None)
Quarter: 2012Q1

REPORT INFORMATION
  Report Type: 
  Country: None (occurrence: None)
  Receive Date: 20120104
  Receipt Date: 20111227
  Transmission Date: 20120608
  Serious: Yes (Hospitalization)
  Sender: FDA-Public Use
  Company Number: DE-ELI_LILLY_AND_COMPANY-DE201111002215

PATIENT
  Age: 72 Year
  Sex: Male

DRUGS (8)
  1. SIMVASTATIN [Concomitant]
     Dosage: UNK
  2. FUROSEMIDE [Concomitant]
     Dosage: 125 MG, UNK
  3. METFORMIN HCL [Concomitant]
     Dosage: 1000 MG, UNK
  4. BYETTA [Suspect]
     Indication: TYPE 2 DIABETES MELLITUS
     Dosage: 10 UG, UNK
     Route: 058
     Dates: start: 20110801, end: 20111026
  5. TAMSULOSIN HCL [Concomitant]
     Dosage: 0.4 MG, UNK
  6. VERAPAMIL [Concomitant]
     Dosage: 80 MG, UNK
  7. DAXAS [Concomitant]
     Dosage: 500 MG, UNK
  8. MARCUMAR [Concomitant]
     Dosage: UNK

REACTIONS (4)
  - ABDOMINAL DISCOMFORT [None]
  - ATRIAL FIBRILLATION [None]
  - WEIGHT INCREASED [None]
  - OEDEMA PERIPHERAL [None]
